FAERS Safety Report 14526365 (Version 3)
Quarter: 2018Q1

REPORT INFORMATION
  Report Type: Report from Study
  Country: AT (occurrence: AT)
  Receive Date: 20180213
  Receipt Date: 20180323
  Transmission Date: 20180509
  Serious: Yes (Hospitalization)
  Sender: FDA-Public Use
  Company Number: AT-CELGENEUS-AUT-20180200116

PATIENT
  Age: 88 Year
  Sex: Male
  Weight: 78 kg

DRUGS (22)
  1. ALLOPURINOL. [Concomitant]
     Active Substance: ALLOPURINOL
     Indication: HYPERURICAEMIA
     Dosage: 150 MILLIGRAM
     Route: 048
     Dates: start: 2012
  2. LASIX [Concomitant]
     Active Substance: FUROSEMIDE
     Indication: HYPERTENSION
     Dosage: 40 MILLIGRAM
     Route: 048
     Dates: start: 2014
  3. TAZONAM [Concomitant]
     Active Substance: TAZOBACTAM
     Indication: INFECTION
     Route: 041
     Dates: start: 20180112
  4. MEXALEN [Concomitant]
     Active Substance: ACETAMINOPHEN
     Indication: SPINAL PAIN
     Route: 048
     Dates: start: 20180112
  5. ANDROFIN [Concomitant]
     Indication: BENIGN PROSTATIC HYPERPLASIA
     Route: 048
     Dates: start: 2007
  6. MOLAXOLE [Concomitant]
     Active Substance: POLYETHYLENE GLYCOL 3350\POTASSIUM CHLORIDE\SODIUM BICARBONATE\SODIUM CHLORIDE
     Indication: CONSTIPATION
     Route: 048
     Dates: start: 2013
  7. FORTUM [Concomitant]
     Active Substance: CEFTAZIDIME
     Indication: INFECTION
     Dosage: 2 GRAM
     Route: 048
     Dates: start: 20180113
  8. ELOMEL [Concomitant]
     Indication: PHLEBITIS
     Route: 065
     Dates: start: 20180108, end: 20180112
  9. ZOFRAN [Concomitant]
     Active Substance: ONDANSETRON HYDROCHLORIDE
     Indication: VOMITING
     Route: 041
     Dates: start: 20180127, end: 20180127
  10. ALLOPURINOL. [Concomitant]
     Active Substance: ALLOPURINOL
     Indication: PROPHYLAXIS
     Route: 048
     Dates: start: 2012
  11. SPIROBENE [Concomitant]
     Active Substance: SPIRONOLACTONE
     Indication: MITRAL VALVE INCOMPETENCE
     Dosage: 25 MILLIGRAM
     Route: 048
     Dates: start: 2014
  12. FOLSAN [Concomitant]
     Active Substance: FOLIC ACID
     Indication: BLOOD FOLATE DECREASED
     Dosage: 5 MILLIGRAM
     Route: 048
     Dates: start: 20171206
  13. ELOMEL [Concomitant]
     Indication: FEBRILE NEUTROPENIA
  14. AZACITIDINE. [Suspect]
     Active Substance: AZACITIDINE
     Indication: ACUTE MYELOID LEUKAEMIA
     Route: 058
     Dates: start: 20180110
  15. VENETOCLAX. [Concomitant]
     Active Substance: VENETOCLAX
     Indication: ACUTE MYELOID LEUKAEMIA
     Route: 065
  16. XANOR [Concomitant]
     Active Substance: ALPRAZOLAM
     Indication: SLEEP APNOEA SYNDROME
     Dosage: .5 MILLIGRAM
     Route: 048
     Dates: start: 2015, end: 20180307
  17. TEMESTA (LORAZEPAM) [Concomitant]
     Active Substance: LORAZEPAM
     Indication: SLEEP APNOEA SYNDROME
     Route: 048
     Dates: start: 20180126, end: 20180307
  18. DEANXIT [Concomitant]
     Active Substance: FLUPENTIXOL DIHYDROCHLORIDE\MELITRACEN HYDROCHLORIDE
     Indication: DEPRESSION
     Dosage: 10 MILLIGRAM
     Route: 048
     Dates: start: 2015
  19. OLEOVIT [Concomitant]
     Indication: VITAMIN D DECREASED
     Dosage: 30 DROPS
     Route: 048
     Dates: start: 20171206, end: 20180307
  20. AGLANDIN [Concomitant]
     Indication: BENIGN PROSTATIC HYPERPLASIA
     Route: 048
     Dates: start: 2007
  21. PANTOLOC [Concomitant]
     Active Substance: PANTOPRAZOLE SODIUM
     Indication: GASTRITIS PROPHYLAXIS
     Dosage: 40 MILLIGRAM
     Route: 048
     Dates: start: 2012
  22. DOMINAL (PROTHIPENDYL HYDROCHLORIDE) [Concomitant]
     Active Substance: PROTHIPENDYL HYDROCHLORIDE
     Indication: SLEEP APNOEA SYNDROME
     Dosage: 40 MILLIGRAM
     Route: 048
     Dates: start: 2015, end: 20180307

REACTIONS (2)
  - Febrile neutropenia [Recovered/Resolved]
  - Phlebitis [Recovered/Resolved]

NARRATIVE: CASE EVENT DATE: 20180126
